FAERS Safety Report 5879800-7 (Version None)
Quarter: 2008Q3

REPORT INFORMATION
  Report Type: 
  Country: None (occurrence: None)
  Receive Date: 20080912
  Receipt Date: 20080905
  Transmission Date: 20090109
  Serious: Yes (Other)
  Sender: FDA-Public Use
  Company Number: DE-BRISTOL-MYERS SQUIBB COMPANY-14332753

PATIENT
  Sex: Female

DRUGS (1)
  1. HOLOXAN [Suspect]
     Route: 065

REACTIONS (1)
  - OSTEOMALACIA [None]
